FAERS Safety Report 22040502 (Version 2)
Quarter: 2023Q1

REPORT INFORMATION
  Report Type: Spontaneous
  Country: CA (occurrence: CA)
  Receive Date: 20230227
  Receipt Date: 20230314
  Transmission Date: 20230418
  Serious: Yes (Other)
  Sender: FDA-Public Use
  Company Number: CA-PFIZER INC-202300079205

PATIENT
  Age: 63 Year
  Sex: Male
  Weight: 118.8 kg

DRUGS (1)
  1. CIBINQO [Suspect]
     Active Substance: ABROCITINIB
     Indication: Dermatitis atopic
     Dosage: 100 MG, 1X/DAY
     Route: 048
     Dates: start: 20230115, end: 2023

REACTIONS (8)
  - Weight increased [Unknown]
  - Thrombosis [Unknown]
  - Drug ineffective [Unknown]
  - Nail psoriasis [Unknown]
  - Pruritus [Unknown]
  - Nail discolouration [Unknown]
  - Nail bed disorder [Unknown]
  - Peripheral swelling [Unknown]

NARRATIVE: CASE EVENT DATE: 20230101
